FAERS Safety Report 7533656-5 (Version None)
Quarter: 2011Q2

REPORT INFORMATION
  Report Type: 
  Country: None (occurrence: None)
  Receive Date: 20110608
  Receipt Date: 20060403
  Transmission Date: 20111010
  Serious: Yes (Other)
  Sender: FDA-Public Use
  Company Number: PHMT2006CA01019

PATIENT
  Sex: Female

DRUGS (2)
  1. CLOZAPINE [Suspect]
     Indication: PSYCHOTIC DISORDER
     Dosage: 150 MG, QD
     Route: 048
     Dates: start: 20010105
  2. SERTRALINE HYDROCHLORIDE [Concomitant]
     Dosage: 150 MG, QD
     Route: 048
     Dates: start: 20000101

REACTIONS (1)
  - BREAST CANCER [None]
